FAERS Safety Report 4398285-3 (Version None)
Quarter: 2004Q3

REPORT INFORMATION
  Report Type: 
  Country: None (occurrence: None)
  Receive Date: 20040712
  Receipt Date: 20040630
  Transmission Date: 20050211
  Serious: Yes (Hospitalization)
  Sender: FDA-Public Use
  Company Number: CA-JNJFOC-20040700948

PATIENT
  Age: 40 Year
  Sex: Female

DRUGS (5)
  1. REMICADE [Suspect]
     Indication: RHEUMATOID ARTHRITIS
     Dosage: 1 IN 8 WEEK, INTRAVENOUS
     Route: 042
     Dates: end: 20040429
  2. REMICADE [Suspect]
     Indication: RHEUMATOID ARTHRITIS
     Dosage: 1 IN 8 WEEK, INTRAVENOUS
     Route: 042
     Dates: start: 20030715
  3. METHOTREXATE SODIUM [Concomitant]
  4. PREDNISONE TAB [Concomitant]
  5. FOSOMAX ( ) ALENDRONATE SODIUM [Concomitant]

REACTIONS (2)
  - HYPOAESTHESIA [None]
  - NUCLEAR MAGNETIC RESONANCE IMAGING BRAIN ABNORMAL [None]
